FAERS Safety Report 4604935-6 (Version None)
Quarter: 2005Q1

REPORT INFORMATION
  Report Type: 
  Country: None (occurrence: None)
  Receive Date: 20050309
  Receipt Date: 20050309
  Transmission Date: 20050727
  Serious: Yes (Disabling)
  Sender: FDA-Public Use
  Company Number: None

PATIENT
  Sex: Female
  Weight: 54.4316 kg

DRUGS (3)
  1. LEVAQUIN [Suspect]
     Indication: SINUSITIS BACTERIAL
     Dosage: 1 PILL  DAY  ORAL
     Route: 048
     Dates: start: 20041213, end: 20041219
  2. PREDNISONE [Concomitant]
  3. KETEK [Concomitant]

REACTIONS (20)
  - ACTIVITIES OF DAILY LIVING IMPAIRED [None]
  - ADVERSE DRUG REACTION [None]
  - ANGIOPATHY [None]
  - BURSA DISORDER [None]
  - CHEST PAIN [None]
  - DIFFICULTY IN WALKING [None]
  - IMPAIRED DRIVING ABILITY [None]
  - INCREASED BRONCHIAL SECRETION [None]
  - INCREASED UPPER AIRWAY SECRETION [None]
  - JOINT SWELLING [None]
  - OEDEMA PERIPHERAL [None]
  - PAIN IN EXTREMITY [None]
  - PERIPHERAL COLDNESS [None]
  - PLANTAR FASCIITIS [None]
  - SINUS DISORDER [None]
  - TENDON DISORDER [None]
  - THERAPY NON-RESPONDER [None]
  - TINNITUS [None]
  - VERTIGO [None]
  - VISION BLURRED [None]
